FAERS Safety Report 21411756 (Version 1)
Quarter: 2022Q4

REPORT INFORMATION
  Report Type: Spontaneous
  Country: GB (occurrence: GB)
  Receive Date: 20221005
  Receipt Date: 20221005
  Transmission Date: 20230113
  Serious: Yes (Disabling)
  Sender: FDA-Public Use
  Company Number: None

PATIENT
  Age: 64 Year
  Sex: Male
  Weight: 83 kg

DRUGS (1)
  1. SILDENAFIL [Suspect]
     Active Substance: SILDENAFIL
     Indication: Product used for unknown indication
     Dosage: AS DIRECTED, UNIT DOSE AND STRENGTH : 100 MG, THERAPY DURATION : 61 DAYS
     Route: 065
     Dates: start: 20220701, end: 20220831

REACTIONS (1)
  - Hypoacusis [Unknown]
